FAERS Safety Report 8422912-4 (Version None)
Quarter: 2012Q2

REPORT INFORMATION
  Report Type: 
  Country: None (occurrence: None)
  Receive Date: 20120608
  Receipt Date: 20120531
  Transmission Date: 20120825
  Serious: Yes (Other)
  Sender: FDA-Public Use
  Company Number: BR-VIIV HEALTHCARE LIMITED-A0980237A

PATIENT
  Sex: Female

DRUGS (7)
  1. METRONIDAZOLE [Concomitant]
     Dates: start: 20111121, end: 20111128
  2. MICONAZOLE [Concomitant]
     Route: 061
     Dates: start: 20111206
  3. LAMIVUDINE (EPIVIR HBV) [Suspect]
     Indication: HIV INFECTION
     Dosage: 300MG PER DAY
     Route: 048
     Dates: start: 20090507
  4. ATAZANAVIR [Suspect]
     Indication: HIV INFECTION
     Dosage: 400MG PER DAY
     Route: 048
     Dates: start: 20081203
  5. AMPICILLIN [Concomitant]
     Dates: start: 20111206, end: 20111213
  6. FOLIC ACID [Concomitant]
     Dates: start: 20111221, end: 20120508
  7. TENOFOVIR DISOPROXIL FUMARATE [Suspect]
     Indication: HIV INFECTION
     Dosage: 300MG PER DAY
     Route: 048
     Dates: start: 20090507

REACTIONS (3)
  - STILLBIRTH [None]
  - GESTATIONAL DIABETES [None]
  - MATERNAL EXPOSURE DURING PREGNANCY [None]
